FAERS Safety Report 4557188-1 (Version None)
Quarter: 2005Q1

REPORT INFORMATION
  Report Type: 
  Country: None (occurrence: None)
  Receive Date: 20050118
  Receipt Date: 20050104
  Transmission Date: 20050727
  Serious: Yes (Other)
  Sender: FDA-Public Use
  Company Number: 2005S1000005

PATIENT
  Sex: Female

DRUGS (1)
  1. ACITRETIN (ACITRETIN) [Suspect]

REACTIONS (1)
  - PREGNANCY [None]
